FAERS Safety Report 9205821 (Version 2)
Quarter: 2013Q2

REPORT INFORMATION
  Report Type: Spontaneous
  Country: US (occurrence: US)
  Receive Date: 20130403
  Receipt Date: 20130513
  Transmission Date: 20140414
  Serious: Yes (Death, Hospitalization, Other)
  Sender: FDA-Public Use
  Company Number: US-AMGEN-USASP2013021983

PATIENT
  Age: 42 Year
  Sex: Female

DRUGS (1)
  1. ARANESP [Suspect]
     Indication: ANAEMIA

REACTIONS (3)
  - Metastases to central nervous system [Fatal]
  - Lung cancer metastatic [Fatal]
  - Status epilepticus [Unknown]
